FAERS Safety Report 13308598 (Version 1)
Quarter: 2017Q1

REPORT INFORMATION
  Report Type: Spontaneous
  Country: US (occurrence: US)
  Receive Date: 20170308
  Receipt Date: 20170308
  Transmission Date: 20170428
  Serious: Yes (Hospitalization, Other)
  Sender: FDA-Public Use
  Company Number: None

PATIENT
  Age: 52 Year
  Sex: Male
  Weight: 124.85 kg

DRUGS (4)
  1. MAGNEVIST [Concomitant]
     Active Substance: GADOPENTETATE DIMEGLUMINE
  2. NAROPIN [Suspect]
     Active Substance: ROPIVACAINE HYDROCHLORIDE
     Indication: NUCLEAR MAGNETIC RESONANCE IMAGING
     Route: 014
     Dates: start: 20170228, end: 20170228
  3. LIDOCAINE. [Concomitant]
     Active Substance: LIDOCAINE
  4. OMNIPAQUE [Suspect]
     Active Substance: IOHEXOL
     Indication: NUCLEAR MAGNETIC RESONANCE IMAGING
     Route: 014
     Dates: start: 20170228, end: 20170228

REACTIONS (1)
  - Arthritis bacterial [None]

NARRATIVE: CASE EVENT DATE: 20170228
